FAERS Safety Report 4603943-9 (Version None)
Quarter: 2005Q1

REPORT INFORMATION
  Report Type: 
  Country: None (occurrence: None)
  Receive Date: 20050310
  Receipt Date: 20041108
  Transmission Date: 20050727
  Serious: Yes (Life-Threatening, Hospitalization)
  Sender: FDA-Public Use
  Company Number: 385325

PATIENT
  Age: 66 Year
  Sex: Female

DRUGS (1)
  1. KREDEX [Suspect]
     Indication: DRUG USE FOR UNKNOWN INDICATION
     Route: 048
     Dates: start: 20040915

REACTIONS (2)
  - CEREBROVASCULAR ACCIDENT [None]
  - HEMIPLEGIA [None]
